FAERS Safety Report 21285537 (Version 1)
Quarter: 2022Q3

REPORT INFORMATION
  Report Type: Spontaneous
  Country: US (occurrence: US)
  Receive Date: 20220902
  Receipt Date: 20220902
  Transmission Date: 20221026
  Serious: Yes (Death, Other)
  Sender: FDA-Public Use
  Company Number: US-BRISTOL-MYERS SQUIBB COMPANY-2022-097057

PATIENT
  Age: 62 Year
  Sex: Male

DRUGS (2)
  1. IDHIFA [Suspect]
     Active Substance: ENASIDENIB MESYLATE
     Indication: Acute myeloid leukaemia
     Dosage: DAILY
     Route: 048
     Dates: start: 20220719
  2. GRANIX [Concomitant]
     Active Substance: TBO-FILGRASTIM
     Indication: Product used for unknown indication
     Dosage: ONCE DAILY IN THE EVENING BEGINNING ON DAY 8. OF CYCLE FOR 10 DAYS OF A 4-6 WEEK CYCLE (CONTINUE UNT
     Route: 065

REACTIONS (1)
  - Malignant neoplasm progression [Fatal]
